FAERS Safety Report 4914317-5 (Version None)
Quarter: 2006Q1

REPORT INFORMATION
  Report Type: 
  Country: None (occurrence: None)
  Receive Date: 20060213
  Receipt Date: 20060123
  Transmission Date: 20060701
  Serious: No
  Sender: FDA-Public Use
  Company Number: 33406

PATIENT
  Age: 33 Year

DRUGS (4)
  1. NEVANAC [Suspect]
     Indication: PROPHYLAXIS
     Dosage: 1 GTT ONCE OPHT
     Route: 047
     Dates: start: 20051111, end: 20051111
  2. ZYMAR [Concomitant]
  3. PRED FORTE [Concomitant]
  4. ALCAINE [Concomitant]

REACTIONS (2)
  - CORNEAL EPITHELIUM DEFECT [None]
  - CORNEAL OPACITY [None]
